FAERS Safety Report 8338401-1 (Version None)
Quarter: 2012Q2

REPORT INFORMATION
  Report Type: 
  Country: None (occurrence: None)
  Receive Date: 20120504
  Receipt Date: 20120503
  Transmission Date: 20120825
  Serious: Yes (Hospitalization)
  Sender: FDA-Public Use
  Company Number: US-B.I. PHARMACEUTICALS,INC./RIDGEFIELD-2012-BP-06814BP

PATIENT
  Age: 78 Year
  Sex: Male
  Weight: 72.7 kg

DRUGS (3)
  1. LIPITOR [Concomitant]
  2. METOPROLOL TARTRATE [Concomitant]
  3. PRADAXA [Suspect]
     Indication: ATRIAL FIBRILLATION
     Dosage: 300 MG
     Dates: start: 20110101

REACTIONS (2)
  - POST PROCEDURAL HAEMORRHAGE [None]
  - COLONIC POLYP [None]
